FAERS Safety Report 7816152-7 (Version None)
Quarter: 2011Q4

REPORT INFORMATION
  Report Type: 
  Country: None (occurrence: None)
  Receive Date: 20111015
  Receipt Date: 20111005
  Transmission Date: 20120403
  Serious: Yes (Hospitalization)
  Sender: FDA-Public Use
  Company Number: BR-ROCHE-1002509

PATIENT
  Sex: Male
  Weight: 93 kg

DRUGS (13)
  1. MABTHERA [Suspect]
     Indication: RHEUMATOID ARTHRITIS
     Route: 042
     Dates: start: 20100301
  2. PIASCLEDINE (BRAZIL) [Concomitant]
  3. TIORFAN [Concomitant]
  4. MODURETIC 5-50 [Concomitant]
     Dosage: 50/5 MG
  5. ALLOPURINOL [Concomitant]
  6. ZOLPIDEM [Concomitant]
  7. VITAMIN D [Concomitant]
  8. PONDERA [Concomitant]
  9. PLAGRIL [Concomitant]
  10. SIMVASTATIN [Concomitant]
  11. NEXIUM [Concomitant]
  12. DIOVAN [Concomitant]
     Dosage: 80/5 MG
  13. PROTOS [Concomitant]

REACTIONS (3)
  - IMMUNOSUPPRESSION [None]
  - VIRAL INFECTION [None]
  - PNEUMONIA [None]
